FAERS Safety Report 5573908-1 (Version None)
Quarter: 2007Q4

REPORT INFORMATION
  Report Type: 
  Country: None (occurrence: None)
  Receive Date: 20071226
  Receipt Date: 20071212
  Transmission Date: 20080405
  Serious: Yes (Hospitalization)
  Sender: FDA-Public Use
  Company Number: GB-GENENTECH-251688

PATIENT
  Sex: Female

DRUGS (5)
  1. BEVACIZUMAB [Suspect]
     Indication: PANCREATIC CARCINOMA
     Dates: start: 20070828
  2. ERLOTINIB [Suspect]
     Indication: PANCREATIC CARCINOMA
     Dates: start: 20071028
  3. CAPECITABINE [Suspect]
     Indication: PANCREATIC CARCINOMA
  4. GEMCITABINE [Suspect]
  5. LANSOPRAZOLE [Concomitant]
     Indication: DRUG USE FOR UNKNOWN INDICATION

REACTIONS (3)
  - ABDOMINAL PAIN [None]
  - PYREXIA [None]
  - VOMITING [None]
